FAERS Safety Report 8503297-1 (Version None)
Quarter: 2012Q3

REPORT INFORMATION
  Report Type: 
  Country: None (occurrence: None)
  Receive Date: 20120711
  Receipt Date: 20120705
  Transmission Date: 20120928
  Serious: No
  Sender: FDA-Public Use
  Company Number: US-PFIZER INC-2012161766

PATIENT
  Sex: Male
  Weight: 106.58 kg

DRUGS (3)
  1. METFORMIN [Concomitant]
     Indication: DIABETES MELLITUS
     Dosage: UNK
  2. VIAGRA [Suspect]
     Indication: ERECTILE DYSFUNCTION
     Dosage: 50 MG, AS NEEDED
     Route: 048
     Dates: start: 20120629
  3. INSULIN [Concomitant]
     Indication: DIABETES MELLITUS
     Dosage: 60 IU, UNK

REACTIONS (1)
  - DRUG EFFECT DECREASED [None]
